FAERS Safety Report 10010036 (Version 2)
Quarter: 2014Q1

REPORT INFORMATION
  Report Type: Spontaneous
  Country: US (occurrence: US)
  Receive Date: 20140312
  Receipt Date: 20140312
  Transmission Date: 20141002
  Serious: No
  Sender: FDA-Public Use
  Company Number: US-INCYTE CORPORATION-2013IN000583

PATIENT
  Age: 77 Year
  Sex: Female
  Weight: 68.03 kg

DRUGS (6)
  1. DOXYCYCLINE [Concomitant]
  2. SYNTHROID [Concomitant]
  3. B12 [Concomitant]
  4. JAKAFI [Suspect]
     Indication: MYELOFIBROSIS
     Dosage: 10 MG, BID
     Route: 048
     Dates: start: 20120514
  5. HYDREA [Concomitant]
  6. IRON [Concomitant]

REACTIONS (8)
  - Dyspnoea [Unknown]
  - Fatigue [Unknown]
  - Bradyphrenia [Unknown]
  - Asthenia [Unknown]
  - Dehydration [Unknown]
  - Oedema peripheral [Unknown]
  - Cardiac valve disease [Unknown]
  - Dizziness [Unknown]
